FAERS Safety Report 6007395-6 (Version None)
Quarter: 2008Q4

REPORT INFORMATION
  Report Type: 
  Country: None (occurrence: None)
  Receive Date: 20081217
  Receipt Date: 20080408
  Transmission Date: 20090506
  Serious: No
  Sender: FDA-Public Use
  Company Number: US-ASTRAZENECA-2008UW07117

PATIENT
  Age: 81 Year
  Sex: Female
  Weight: 53.1 kg

DRUGS (4)
  1. CRESTOR [Suspect]
     Indication: BLOOD CHOLESTEROL INCREASED
     Dosage: 5 MG
     Route: 048
     Dates: start: 20080115
  2. FOSAMAX [Concomitant]
  3. DIGITEK [Concomitant]
  4. COUMADIN [Concomitant]

REACTIONS (1)
  - PARAESTHESIA [None]
